FAERS Safety Report 7685950-5 (Version None)
Quarter: 2011Q3

REPORT INFORMATION
  Report Type: 
  Country: None (occurrence: None)
  Receive Date: 20110816
  Receipt Date: 20110801
  Transmission Date: 20111222
  Serious: Yes (Other)
  Sender: FDA-Public Use
  Company Number: PHHY2011US70660

PATIENT
  Sex: Male

DRUGS (4)
  1. PHENOBARBITAL TAB [Concomitant]
  2. TASIGNA [Suspect]
     Indication: CHRONIC MYELOID LEUKAEMIA
     Dosage: 200 MG, BID
  3. TASIGNA [Interacting]
     Dosage: 150 MG, BID
     Route: 048
  4. DILANTIN [Interacting]
     Dosage: UNK

REACTIONS (4)
  - OEDEMA PERIPHERAL [None]
  - DRUG INTERACTION [None]
  - JOINT SWELLING [None]
  - CONVULSION [None]
